FAERS Safety Report 5094835-2 (Version None)
Quarter: 2006Q3

REPORT INFORMATION
  Report Type: 
  Country: None (occurrence: None)
  Receive Date: 20060830
  Receipt Date: 20060830
  Transmission Date: 20061208
  Serious: No
  Sender: FDA-Public Use
  Company Number: None

PATIENT
  Age: 48 Year
  Sex: Female

DRUGS (1)
  1. POLYETHYLENE GI 3350 PWD 527 G TEVA [Suspect]
     Indication: CONSTIPATION
     Dosage: MIX 17 GRAMS (1 CAPFUL) IN 8 OUNCES OF WATER AND DRINK AT BEDTIME
     Dates: start: 20060807

REACTIONS (2)
  - GASTROINTESTINAL DISORDER [None]
  - PHARMACEUTICAL PRODUCT COMPLAINT [None]
